FAERS Safety Report 5159040-X (Version None)
Quarter: 2006Q4

REPORT INFORMATION
  Report Type: 
  Country: None (occurrence: None)
  Receive Date: 20061117
  Receipt Date: 20061102
  Transmission Date: 20070319
  Serious: Yes (Death)
  Sender: FDA-Public Use
  Company Number: 061106-0000982

PATIENT
  Age: 23 Year
  Sex: 0

DRUGS (3)
  1. METHAMPHETAMINE (METHAMPHETAMINE HYDROCHLORIDE) [Suspect]
     Indication: COMPLETED SUICIDE
  2. DESIPRAMINE HCL [Suspect]
     Indication: COMPLETED SUICIDE
  3. COCAINE (COCAINE) [Suspect]
     Indication: COMPLETED SUICIDE

REACTIONS (1)
  - COMPLETED SUICIDE [None]
